FAERS Safety Report 6613526-7 (Version None)
Quarter: 2010Q1

REPORT INFORMATION
  Report Type: 
  Country: None (occurrence: None)
  Receive Date: 20100225
  Receipt Date: 20100218
  Transmission Date: 20100710
  Serious: Yes (Life-Threatening)
  Sender: FDA-Public Use
  Company Number: CAO09001794

PATIENT
  Sex: Male

DRUGS (1)
  1. NYQUIL COLD / FLU, PSEUDOEPHEDRINE FREE (PARACETAMOL 325 MG, DEXTROMET [Suspect]
     Dosage: 2 LIQCAP, 1 ONLY FOR 1 DAY, ORAL
     Route: 048
     Dates: start: 20091104, end: 20091104

REACTIONS (6)
  - CONTUSION [None]
  - EYE INJURY [None]
  - LIMB INJURY [None]
  - LOSS OF CONSCIOUSNESS [None]
  - RIB FRACTURE [None]
  - SKIN LACERATION [None]
